FAERS Safety Report 8358729-9 (Version None)
Quarter: 2012Q2

REPORT INFORMATION
  Report Type: 
  Country: None (occurrence: None)
  Receive Date: 20120514
  Receipt Date: 20120508
  Transmission Date: 20120825
  Serious: Yes (Hospitalization, Other)
  Sender: FDA-Public Use
  Company Number: US-ABBOTT-12P-163-0919162-00

PATIENT
  Sex: Female

DRUGS (4)
  1. VITAMIN TAB [Concomitant]
     Indication: PRODUCT USED FOR UNKNOWN INDICATION
     Dosage: OVER THE COUNTER
  2. HUMIRA [Suspect]
     Indication: PSORIASIS
     Dates: start: 20090430
  3. MULTIPLE CORTISONE CREAMS [Concomitant]
     Indication: PRODUCT USED FOR UNKNOWN INDICATION
  4. THYROID TAB [Concomitant]
     Indication: PRODUCT USED FOR UNKNOWN INDICATION

REACTIONS (8)
  - LOSS OF CONSCIOUSNESS [None]
  - CELLULITIS [None]
  - TOOTH INFECTION [None]
  - PRURITUS [None]
  - FALL [None]
  - OEDEMA PERIPHERAL [None]
  - PSORIASIS [None]
  - CERVICAL VERTEBRAL FRACTURE [None]
